FAERS Safety Report 10064341 (Version 1)
Quarter: 2014Q1

REPORT INFORMATION
  Report Type: Spontaneous
  Country: US (occurrence: None)
  Receive Date: 20140114
  Receipt Date: 20140114
  Transmission Date: 20141002
  Serious: Yes (Other)
  Sender: FDA-Public Use
  Company Number: US-JNJFOC-20130805900

PATIENT
  Age: 45 Year
  Sex: Male
  Weight: 65.77 kg

DRUGS (3)
  1. ZYRTEC IR [Suspect]
     Indication: MULTIPLE ALLERGIES
     Route: 048
     Dates: start: 20130724
  2. ZYRTEC IR [Suspect]
     Indication: SEASONAL ALLERGY
     Route: 048
     Dates: start: 20130724
  3. MELATONIN (MELATONIN) [Concomitant]

REACTIONS (2)
  - Depression [None]
  - Asthenia [None]
